FAERS Safety Report 13938056 (Version 2)
Quarter: 2017Q3

REPORT INFORMATION
  Report Type: Report from Study
  Country: IN (occurrence: IN)
  Receive Date: 20170905
  Receipt Date: 20170925
  Transmission Date: 20171127
  Serious: Yes (Death, Life-Threatening, Hospitalization, Other)
  Sender: FDA-Public Use
  Company Number: IN-PFIZER INC-2017378731

PATIENT
  Age: 10 Year
  Sex: Male
  Weight: 32 kg

DRUGS (1)
  1. INOTUZUMAB OZOGAMICIN [Suspect]
     Active Substance: INOTUZUMAB OZOGAMICIN
     Indication: ACUTE LYMPHOCYTIC LEUKAEMIA
     Dosage: 0.5 MG/M2, WEEKLY
     Route: 042
     Dates: start: 20170828, end: 20170828

REACTIONS (15)
  - Pain [Unknown]
  - Hypoglycaemia [Unknown]
  - Hypotension [Unknown]
  - Cardiac arrest [Fatal]
  - Shock [Fatal]
  - Ventricular arrhythmia [Fatal]
  - Restlessness [Unknown]
  - Ventricular tachycardia [Unknown]
  - Seizure [Recovered/Resolved]
  - Hypokalaemia [Unknown]
  - Nausea [Unknown]
  - Metabolic acidosis [Unknown]
  - Respiratory depression [Unknown]
  - Loss of consciousness [Unknown]
  - Lactic acidosis [Unknown]

NARRATIVE: CASE EVENT DATE: 2017
